FAERS Safety Report 12774645 (Version 2)
Quarter: 2016Q4

REPORT INFORMATION
  Report Type: Spontaneous
  Country: US (occurrence: US)
  Receive Date: 20160923
  Receipt Date: 20161004
  Transmission Date: 20170207
  Serious: Yes (Death, Other)
  Sender: FDA-Public Use
  Company Number: US-009507513-1609USA007244

PATIENT

DRUGS (1)
  1. FUROSEMIDE. [Suspect]
     Active Substance: FUROSEMIDE
     Dosage: UNK (SUPRA THERAPEUTIC DOSES)
     Route: 048

REACTIONS (5)
  - Toxicity to various agents [Fatal]
  - Cardiac arrest [Fatal]
  - Arrhythmia [Unknown]
  - Blood potassium decreased [Unknown]
  - Overdose [Unknown]
